FAERS Safety Report 6998143-1 (Version None)
Quarter: 2010Q3

REPORT INFORMATION
  Report Type: 
  Country: None (occurrence: None)
  Receive Date: 20100920
  Receipt Date: 20090721
  Transmission Date: 20110219
  Serious: Yes (Other)
  Sender: FDA-Public Use
  Company Number: US-ASTRAZENECA-2007UW05841

PATIENT
  Age: 27617 Day
  Sex: Male

DRUGS (8)
  1. SEROQUEL [Suspect]
     Route: 048
     Dates: start: 20050929
  2. PAXIL CL [Concomitant]
     Dosage: 25 QD
     Dates: start: 20050929
  3. CLONIDINE [Concomitant]
     Dosage: 0.2 TID
     Dates: start: 20050929
  4. XANAX [Concomitant]
     Dosage: 0.5 QD
     Dates: start: 20050929
  5. MIRTAZAPINE [Concomitant]
     Dosage: 15 QHS
     Dates: start: 20050929
  6. MOBIC [Concomitant]
     Dosage: 7.5 QD
     Dates: start: 20050929, end: 20061207
  7. TOPROL-XL [Concomitant]
     Dosage: 50 QHS
     Dates: start: 20050929
  8. COZAAR [Concomitant]
     Dosage: 100 QD
     Dates: start: 20061207

REACTIONS (3)
  - DIABETES MELLITUS [None]
  - KETOACIDOSIS [None]
  - PANCREATITIS [None]
